APPROVED DRUG PRODUCT: TOPIRAMATE
Active Ingredient: TOPIRAMATE
Strength: 100MG
Dosage Form/Route: TABLET;ORAL
Application: A076315 | Product #002
Applicant: BARR LABORATORIES INC
Approved: Mar 27, 2009 | RLD: No | RS: No | Type: DISCN